FAERS Safety Report 5866663-9 (Version None)
Quarter: 2008Q3

REPORT INFORMATION
  Report Type: 
  Country: None (occurrence: None)
  Receive Date: 20080902
  Receipt Date: 20080829
  Transmission Date: 20090109
  Serious: Yes (Disabling, Other)
  Sender: FDA-Public Use
  Company Number: GB-BRISTOL-MYERS SQUIBB COMPANY-14319362

PATIENT
  Age: 48 Year
  Sex: Female

DRUGS (2)
  1. SUSTIVA [Suspect]
     Indication: HIV INFECTION
     Route: 048
     Dates: start: 20071122, end: 20080501
  2. TRUVADA [Concomitant]
     Indication: HIV INFECTION
     Route: 048

REACTIONS (5)
  - ABNORMAL DREAMS [None]
  - BREAST PAIN [None]
  - MOOD SWINGS [None]
  - NIGHT SWEATS [None]
  - PERSONALITY CHANGE [None]
